FAERS Safety Report 11025077 (Version 1)
Quarter: 2015Q2

REPORT INFORMATION
  Report Type: Spontaneous
  Country: US (occurrence: US)
  Receive Date: 20150414
  Receipt Date: 20150414
  Transmission Date: 20150821
  Serious: Yes (Other)
  Sender: FDA-Public Use
  Company Number: US-JNJFOC-20150401334

PATIENT
  Sex: Female
  Weight: 63.5 kg

DRUGS (2)
  1. ZYRTEC [Concomitant]
     Active Substance: CETIRIZINE HYDROCHLORIDE
     Indication: MULTIPLE ALLERGIES
     Route: 065
  2. ORTHO EVRA [Suspect]
     Active Substance: ETHINYL ESTRADIOL\NORELGESTROMIN
     Indication: OVARIAN CYST
     Route: 062
     Dates: start: 2009, end: 201402

REACTIONS (5)
  - Breast atrophy [Not Recovered/Not Resolved]
  - Polycystic ovaries [Unknown]
  - Blood testosterone increased [Recovered/Resolved]
  - Product use issue [Unknown]
  - Blood cortisol increased [Recovered/Resolved]

NARRATIVE: CASE EVENT DATE: 2009
